FAERS Safety Report 7680379-8 (Version None)
Quarter: 2011Q3

REPORT INFORMATION
  Report Type: 
  Country: None (occurrence: None)
  Receive Date: 20110812
  Receipt Date: 20110809
  Transmission Date: 20111222
  Serious: Yes (Hospitalization)
  Sender: FDA-Public Use
  Company Number: LT-GLAXOSMITHKLINE-B0739106A

PATIENT
  Age: 36 Year
  Sex: Female
  Weight: 80 kg

DRUGS (3)
  1. PAROXETINE HCL [Suspect]
     Indication: SUICIDE ATTEMPT
     Route: 048
  2. DIAZEPAM [Suspect]
     Indication: SUICIDE ATTEMPT
     Dosage: 20TAB PER DAY
     Route: 048
  3. AMITRIPTYLINE HCL [Suspect]
     Indication: SUICIDE ATTEMPT
     Route: 048

REACTIONS (2)
  - DEPRESSED LEVEL OF CONSCIOUSNESS [None]
  - SOMNOLENCE [None]
